FAERS Safety Report 19772055 (Version 1)
Quarter: 2021Q3

REPORT INFORMATION
  Report Type: Spontaneous
  Country: US (occurrence: US)
  Receive Date: 20210901
  Receipt Date: 20210901
  Transmission Date: 20211014
  Serious: No
  Sender: FDA-Public Use
  Company Number: US-TORRENT-00011224

PATIENT
  Age: 75 Year
  Sex: Male
  Weight: 99 kg

DRUGS (3)
  1. ESCITALOPRAM OXALATE TABLETS [Suspect]
     Active Substance: ESCITALOPRAM OXALATE
     Indication: CEREBRAL DISORDER
     Dosage: 10 MG SINCE 6 DAYS, NOW GOING TO TAKE 5 MG FROM NEXT DAY
     Dates: start: 20210813
  2. ELIQUIS [Concomitant]
     Active Substance: APIXABAN
     Indication: ANTICOAGULANT THERAPY
     Dosage: 10 MG
  3. MELATONIN [Interacting]
     Active Substance: MELATONIN
     Indication: INSOMNIA

REACTIONS (2)
  - Drug interaction [Unknown]
  - Somnolence [Unknown]

NARRATIVE: CASE EVENT DATE: 202108
